FAERS Safety Report 6562030-3 (Version None)
Quarter: 2010Q1

REPORT INFORMATION
  Report Type: 
  Country: None (occurrence: None)
  Receive Date: 20100130
  Receipt Date: 20091207
  Transmission Date: 20100710
  Serious: No
  Sender: FDA-Public Use
  Company Number: US-ABBOTT-09P-163-0600658-00

PATIENT
  Sex: Male
  Weight: 69.916 kg

DRUGS (3)
  1. HUMIRA [Suspect]
     Indication: CROHN'S DISEASE
     Dosage: DAY 1
     Dates: start: 20090924, end: 20090924
  2. HUMIRA [Suspect]
     Dosage: 80MG DAY 15
     Dates: start: 20090924, end: 20090924
  3. HUMIRA [Suspect]

REACTIONS (6)
  - ABDOMINAL PAIN [None]
  - DECREASED APPETITE [None]
  - DIARRHOEA [None]
  - NAUSEA [None]
  - ORAL DISORDER [None]
  - SKIN LESION [None]
